FAERS Safety Report 25139798 (Version 2)
Quarter: 2025Q2

REPORT INFORMATION
  Report Type: Spontaneous
  Country: US (occurrence: US)
  Receive Date: 20250331
  Receipt Date: 20250401
  Transmission Date: 20250717
  Serious: Yes (Hospitalization, Other)
  Sender: GRAVITI PHARMACEUTICALS
  Company Number: US-GRAVITIPHARMA-GRA-2503-US-LIT-0147

PATIENT
  Age: 68 Year
  Sex: Male

DRUGS (1)
  1. TRAMADOL HYDROCHLORIDE [Suspect]
     Active Substance: TRAMADOL HYDROCHLORIDE
     Indication: Back pain
     Route: 065

REACTIONS (3)
  - Hypoglycaemia [Recovered/Resolved]
  - Encephalopathy [Recovered/Resolved]
  - Respiratory failure [Recovered/Resolved]
